FAERS Safety Report 4676058-1 (Version None)
Quarter: 2005Q2

REPORT INFORMATION
  Report Type: 
  Country: None (occurrence: None)
  Receive Date: 20050527
  Receipt Date: 20050428
  Transmission Date: 20051028
  Serious: No
  Sender: FDA-Public Use
  Company Number: US-GLAXOSMITHKLINE-A0556320A

PATIENT
  Age: 39 Year
  Sex: Male
  Weight: 81.8 kg

DRUGS (2)
  1. WELLBUTRIN XL [Suspect]
     Indication: ILL-DEFINED DISORDER
     Route: 048
     Dates: start: 20050101
  2. SERZONE [Concomitant]

REACTIONS (1)
  - RASH [None]
